FAERS Safety Report 11676965 (Version 1)
Quarter: 2015Q4

REPORT INFORMATION
  Report Type: Spontaneous
  Country: GB (occurrence: GB)
  Receive Date: 20151028
  Receipt Date: 20151028
  Transmission Date: 20160304
  Serious: Yes (Other)
  Sender: FDA-Public Use
  Company Number: GB-FRESENIUS KABI-FK201505368

PATIENT
  Weight: 112 kg

DRUGS (2)
  1. ROCURONIUM [Suspect]
     Active Substance: ROCURONIUM BROMIDE
     Indication: ARTHROSCOPIC SURGERY
     Route: 065
     Dates: start: 20150924, end: 20150924
  2. BRIDION [Suspect]
     Active Substance: SUGAMMADEX
     Indication: ARTHROSCOPIC SURGERY
     Dates: start: 20150924, end: 20150924

REACTIONS (1)
  - Anaphylactic reaction [Recovered/Resolved]

NARRATIVE: CASE EVENT DATE: 20150924
